FAERS Safety Report 5434478-1 (Version None)
Quarter: 2007Q3

REPORT INFORMATION
  Report Type: 
  Country: None (occurrence: None)
  Receive Date: 20070831
  Receipt Date: 20070718
  Transmission Date: 20080115
  Serious: No
  Sender: FDA-Public Use
  Company Number: A0662382A

PATIENT
  Age: 47 Year
  Sex: Male
  Weight: 80.5 kg

DRUGS (2)
  1. ALLI [Suspect]
     Route: 048
     Dates: start: 20070601, end: 20070709
  2. AUGMENTIN '125' [Suspect]
     Indication: STAPHYLOCOCCAL INFECTION

REACTIONS (9)
  - ARTHRALGIA [None]
  - BURSITIS [None]
  - DRUG INTERACTION [None]
  - ERYTHEMA [None]
  - FALL [None]
  - JOINT SWELLING [None]
  - PAIN IN EXTREMITY [None]
  - SKIN LACERATION [None]
  - STAPHYLOCOCCAL INFECTION [None]
